FAERS Safety Report 11843650 (Version 1)
Quarter: 2015Q4

REPORT INFORMATION
  Report Type: Spontaneous
  Country: US (occurrence: US)
  Receive Date: 20151217
  Receipt Date: 20151217
  Transmission Date: 20160305
  Serious: No
  Sender: FDA-Public Use
  Company Number: US-HOSPIRA-2521843

PATIENT
  Age: 51 Year
  Sex: Female
  Weight: 50 kg

DRUGS (5)
  1. TRAMADOL. [Concomitant]
     Active Substance: TRAMADOL
     Indication: PAIN
     Dosage: UNKNOWN, UNKNOWN
     Route: 048
  2. METHOTREXATE [Suspect]
     Active Substance: METHOTREXATE
     Indication: RHEUMATOID ARTHRITIS
     Dosage: 0.8 ML
     Route: 058
     Dates: start: 20140829
  3. VITAMINS                           /90003601/ [Concomitant]
     Active Substance: VITAMINS
     Indication: PRODUCT USED FOR UNKNOWN INDICATION
     Dosage: UNKNOWN, UNKNOWN
     Route: 048
  4. DOCUSATE [Concomitant]
     Active Substance: DOCUSATE
     Indication: FAECES HARD
     Dosage: UNKNOWN, UNKNOWN
     Route: 048
  5. METHOTREXATE [Suspect]
     Active Substance: METHOTREXATE
     Indication: RHEUMATOID ARTHRITIS
     Dosage: 0.8 ML
     Route: 058
     Dates: start: 201405

REACTIONS (4)
  - Underdose [Unknown]
  - Product packaging quantity issue [Unknown]
  - Underdose [Unknown]
  - Product packaging quantity issue [Unknown]

NARRATIVE: CASE EVENT DATE: 2014
